FAERS Safety Report 4911222-5 (Version None)
Quarter: 2006Q1

REPORT INFORMATION
  Report Type: 
  Country: None (occurrence: None)
  Receive Date: 20060209
  Receipt Date: 20060127
  Transmission Date: 20060701
  Serious: Yes (Death, Hospitalization, Other)
  Sender: FDA-Public Use
  Company Number: 430002L05ESP

PATIENT
  Age: 26 Year
  Sex: Female

DRUGS (3)
  1. MITOXANTRONE [Suspect]
     Indication: MULTIPLE SCLEROSIS
     Dosage: 12 MG/M2, 1 IN 1 MONTHS, INTRAVENOUS (NOT OTHERWISE SPECIFIED), 12MG/M2, 1 IN 3 MONTHS, INTRAVENOUS
     Route: 042
     Dates: start: 20020321, end: 20020501
  2. MITOXANTRONE [Suspect]
     Indication: MULTIPLE SCLEROSIS
     Dosage: 12 MG/M2, 1 IN 1 MONTHS, INTRAVENOUS (NOT OTHERWISE SPECIFIED), 12MG/M2, 1 IN 3 MONTHS, INTRAVENOUS
     Route: 042
     Dates: start: 20020501, end: 20030301
  3. GLATIRAMER ACETATE [Concomitant]

REACTIONS (4)
  - ACUTE LYMPHOCYTIC LEUKAEMIA [None]
  - BRONCHOPULMONARY ASPERGILLOSIS [None]
  - HAEMATOMA [None]
  - IMMUNOSUPPRESSION [None]
